FAERS Safety Report 11892122 (Version 3)
Quarter: 2016Q1

REPORT INFORMATION
  Report Type: Report from Study
  Country: JP (occurrence: JP)
  Receive Date: 20160106
  Receipt Date: 20160226
  Transmission Date: 20160526
  Serious: Yes (Hospitalization)
  Sender: FDA-Public Use
  Company Number: JP-CONCORDIA PHARMACEUTICALS INC.-CO-ZO-JP-2015-093

PATIENT
  Age: 76 Year
  Sex: Female

DRUGS (17)
  1. TAKEPRON [Concomitant]
     Active Substance: LANSOPRAZOLE
  2. LOXONIN [Concomitant]
     Active Substance: LOXOPROFEN SODIUM
  3. ARICEPT [Concomitant]
     Active Substance: DONEPEZIL HYDROCHLORIDE
  4. ACTONEL [Concomitant]
     Active Substance: RISEDRONATE SODIUM
  5. SYMMETREL [Concomitant]
     Active Substance: AMANTADINE HYDROCHLORIDE
  6. MAGMITT [Concomitant]
     Active Substance: MAGNESIUM OXIDE
  7. LECICARBON [Concomitant]
     Active Substance: SODIUM BICARBONATE\SODIUM PHOSPHATE, MONOBASIC
  8. ZONEGRAN [Suspect]
     Active Substance: ZONISAMIDE
     Indication: PARKINSON^S DISEASE
     Route: 048
     Dates: start: 20150926, end: 20151012
  9. MENESIT [Concomitant]
     Active Substance: CARBIDOPA\LEVODOPA
  10. CONSTAN [Concomitant]
     Active Substance: ALPRAZOLAM
  11. AMLODIN [Concomitant]
     Active Substance: AMLODIPINE BESYLATE
  12. LYRICA [Concomitant]
     Active Substance: PREGABALIN
  13. ZONEGRAN [Suspect]
     Active Substance: ZONISAMIDE
     Route: 048
     Dates: start: 20151013, end: 20151108
  14. FP-OD [Concomitant]
     Active Substance: SELEGILINE HYDROCHLORIDE
  15. NOURIAST [Concomitant]
     Active Substance: ISTRADEFYLLINE
  16. MYSLEE [Concomitant]
     Active Substance: ZOLPIDEM TARTRATE
  17. PURSENNID [Concomitant]
     Active Substance: SENNOSIDES A AND B

REACTIONS (1)
  - Hallucination, visual [Recovered/Resolved]

NARRATIVE: CASE EVENT DATE: 20151031
